FAERS Safety Report 18221732 (Version 2)
Quarter: 2020Q4

REPORT INFORMATION
  Report Type: Spontaneous
  Country: US (occurrence: US)
  Receive Date: 20200902
  Receipt Date: 20201202
  Transmission Date: 20210113
  Serious: No
  Sender: FDA-Public Use
  Company Number: US-DECIPHERA PHARMACEUTICALS LLC-2020-US-000301

PATIENT
  Sex: Male

DRUGS (2)
  1. QINLOCK [Suspect]
     Active Substance: RIPRETINIB
     Dosage: 150 MILLIGRAM, QD
     Route: 048
     Dates: start: 20200704
  2. QINLOCK [Suspect]
     Active Substance: RIPRETINIB
     Indication: GASTROINTESTINAL STROMAL TUMOUR
     Dosage: 150 MILLIGRAM, QD
     Route: 048
     Dates: start: 20200704

REACTIONS (9)
  - Pain [Unknown]
  - Abdominal pain upper [Unknown]
  - Fistula [Unknown]
  - Blood pressure increased [Unknown]
  - Alopecia [Unknown]
  - Diarrhoea [Unknown]
  - Hyperkeratosis [Unknown]
  - Anaemia [Unknown]
  - Blood iron decreased [Unknown]
